FAERS Safety Report 9153968 (Version 1)
Quarter: 2013Q1

REPORT INFORMATION
  Report Type: Spontaneous
  Country: FR (occurrence: None)
  Receive Date: 20130207
  Receipt Date: 20130207
  Transmission Date: 20140127
  Serious: Yes (Hospitalization)
  Sender: FDA-Public Use
  Company Number: 2013SP001820

PATIENT
  Age: 55 Year
  Sex: Male

DRUGS (13)
  1. VANCOMYCIN [Suspect]
     Dates: start: 20120316, end: 20120428
  2. PIPERACILLIN AND TAZOBACTAM [Suspect]
     Dates: start: 20120227
  3. FLUCONAZOLE [Suspect]
     Dates: start: 20120307
  4. CIPROFLOXACIN (CIPROFLOXACIN) [Suspect]
  5. MEROPENEM [Suspect]
     Dates: start: 20120406, end: 20120428
  6. CEFEPIME (CEFEPIME) [Suspect]
  7. RIFAMPICIN [Suspect]
     Dates: start: 20120406, end: 20120428
  8. LINEZOLID [Suspect]
     Dates: start: 20120307
  9. PRIMAXIN IV [Concomitant]
     Dates: start: 20120307
  10. AMIKACIN (AMIKACIN) [Suspect]
     Dates: start: 20120307
  11. GENTAMICIN [Suspect]
     Dates: start: 20120316
  12. COLISTIMETHATE [Suspect]
     Dates: start: 20120316
  13. CASPOFUNGIN [Suspect]
     Dates: start: 20120406, end: 20120428

REACTIONS (1)
  - Acquired haemophilia [None]
